FAERS Safety Report 8331494-7 (Version None)
Quarter: 2012Q2

REPORT INFORMATION
  Report Type: 
  Country: None (occurrence: None)
  Receive Date: 20120502
  Receipt Date: 20120419
  Transmission Date: 20120825
  Serious: No
  Sender: FDA-Public Use
  Company Number: US-AMGEN-USASP2012016439

PATIENT
  Age: 70 Year
  Sex: Female

DRUGS (5)
  1. ENBREL [Suspect]
     Indication: PRODUCT USED FOR UNKNOWN INDICATION
     Dosage: 25 MG, 2 TIMES/WK
     Dates: start: 20120101
  2. MEDROL [Concomitant]
     Dosage: UNK
  3. ALLEGRA [Concomitant]
     Dosage: UNK
  4. NORVASC [Concomitant]
     Dosage: UNK
  5. BENAZEPRIL HYDROCHLORIDE [Concomitant]
     Dosage: UNK

REACTIONS (11)
  - JOINT SWELLING [None]
  - URTICARIA [None]
  - OEDEMA MOUTH [None]
  - CERUMEN IMPACTION [None]
  - SWOLLEN TONGUE [None]
  - RASH [None]
  - PRURITUS [None]
  - EAR INFECTION [None]
  - EAR PAIN [None]
  - SWELLING FACE [None]
  - OEDEMA PERIPHERAL [None]
